FAERS Safety Report 11415725 (Version 2)
Quarter: 2015Q3

REPORT INFORMATION
  Report Type: Spontaneous
  Country: JP (occurrence: JP)
  Receive Date: 20150825
  Receipt Date: 20150908
  Transmission Date: 20151125
  Serious: Yes (Other)
  Sender: FDA-Public Use
  Company Number: JP-JNJFOC-20150810150

PATIENT
  Age: 74 Year
  Sex: Female

DRUGS (9)
  1. TRAMCET [Suspect]
     Active Substance: ACETAMINOPHEN\TRAMADOL
     Indication: BACK PAIN
     Dosage: 4 PER 1 DAY
     Route: 048
     Dates: start: 201508, end: 201509
  2. ONON [Concomitant]
     Active Substance: PRANLUKAST
     Indication: ASTHMA
     Dosage: TWICE PER 1 DAY
     Route: 048
  3. NEUROTROPIN [Concomitant]
     Active Substance: NEUROTROPIN
     Indication: PAIN
     Dosage: TWICE PER 1 DAY
     Route: 048
     Dates: start: 20150810, end: 20150814
  4. TRAMCET [Suspect]
     Active Substance: ACETAMINOPHEN\TRAMADOL
     Indication: BACK PAIN
     Dosage: 4 PER 1 DAY
     Route: 048
     Dates: start: 201508
  5. TRAMCET [Suspect]
     Active Substance: ACETAMINOPHEN\TRAMADOL
     Indication: BACK PAIN
     Dosage: 2 PER 1 DAY
     Route: 048
     Dates: start: 201507, end: 201508
  6. OPALMON [Concomitant]
     Active Substance: LIMAPROST
     Indication: SPINAL COLUMN STENOSIS
     Route: 048
     Dates: start: 20140825
  7. TRAMCET [Suspect]
     Active Substance: ACETAMINOPHEN\TRAMADOL
     Indication: BACK PAIN
     Dosage: 3 TABLETS PER DAY, 3 TIMES DAILY
     Route: 048
  8. VESICARE [Concomitant]
     Active Substance: SOLIFENACIN SUCCINATE
     Indication: HYPERTONIC BLADDER
     Dosage: ONCE PER 1 DAY
     Route: 048
     Dates: start: 20140825
  9. TRAMCET [Suspect]
     Active Substance: ACETAMINOPHEN\TRAMADOL
     Indication: BACK PAIN
     Dosage: AS NECESSARY
     Route: 048
     Dates: start: 20150724, end: 201507

REACTIONS (3)
  - Inappropriate schedule of drug administration [Unknown]
  - Treatment noncompliance [Unknown]
  - Drug dependence [Unknown]

NARRATIVE: CASE EVENT DATE: 20150810
